FAERS Safety Report 5971239-9 (Version None)
Quarter: 2008Q4

REPORT INFORMATION
  Report Type: 
  Country: None (occurrence: None)
  Receive Date: 20081128
  Receipt Date: 20081120
  Transmission Date: 20090506
  Serious: Yes (Other)
  Sender: FDA-Public Use
  Company Number: JP-PFIZER INC-2008072788

PATIENT
  Sex: Male

DRUGS (6)
  1. VIBRAMYCIN [Suspect]
     Indication: INFECTION PROPHYLAXIS
     Route: 048
     Dates: start: 20080815, end: 20080815
  2. ZYPREXA [Concomitant]
  3. HERBAL PREPARATION [Concomitant]
     Indication: INFERTILITY MALE
     Route: 048
     Dates: start: 20080319
  4. JUVELA NICOTINATE [Concomitant]
     Indication: INFERTILITY MALE
     Route: 048
     Dates: start: 20080319
  5. KALLIKREIN [Concomitant]
     Indication: INFERTILITY MALE
     Route: 048
     Dates: start: 20080319
  6. CYANOCOBALAMIN [Concomitant]
     Indication: INFERTILITY MALE
     Route: 048
     Dates: start: 20080319

REACTIONS (1)
  - STEVENS-JOHNSON SYNDROME [None]
